FAERS Safety Report 23024154 (Version 1)
Quarter: 2023Q4

REPORT INFORMATION
  Report Type: Spontaneous
  Country: CN (occurrence: CN)
  Receive Date: 20231004
  Receipt Date: 20231004
  Transmission Date: 20240110
  Serious: Yes (Life-Threatening, Hospitalization, Other)
  Sender: FDA-Public Use
  Company Number: CN-BAXTER-2023BAX030829

PATIENT
  Sex: Female

DRUGS (9)
  1. CYCLOPHOSPHAMIDE [Suspect]
     Active Substance: CYCLOPHOSPHAMIDE
     Indication: Neuroblastoma
     Dosage: COMBINED WITH IRINOTECAN 0.22 G (DAY 1-5),2 CYCLES OF CHEMOTHERAPY A TOTAL OF 5 CYCLES OF CHEMOTHERA
     Route: 065
     Dates: start: 20210912
  2. IRINOTECAN [Suspect]
     Active Substance: IRINOTECAN
     Indication: Neuroblastoma
     Dosage: 65 MG  (DAY 1-3) CYCLOPHOSPHAMIDE COMBINED WITH IRINOTECAN 2 CYCLES OF CHEMOTHERAPY
     Route: 065
     Dates: start: 20210912
  3. ETOPOSIDE [Suspect]
     Active Substance: ETOPOSIDE
     Indication: Neuroblastoma
     Dosage: 0.115 G (DAY 1-3) ETOPOSIDE COMBINED WITH CISPLATIN CHEMOTHERAPY FOR ONE CYCLE
     Route: 065
     Dates: start: 20211104
  4. ETOPOSIDE [Suspect]
     Active Substance: ETOPOSIDE
     Dosage: 0.1 G (DAY 1-3) ETOPOSIDE COMBINED WITH NEDAPLATIN FOR 2 CYCLES A TOTAL OF 5 CYCLES OF CHEMOTHERAPY
     Route: 065
     Dates: start: 20211201
  5. ETOPOSIDE [Suspect]
     Active Substance: ETOPOSIDE
     Dosage: 0.1 G (DAY 1-3) ETOPOSIDE COMBINED WITH NEDAPLATIN FOR 2 CYCLES A TOTAL OF 5 CYCLES OF CHEMOTHERAPY
     Route: 065
     Dates: start: 20211229
  6. CISPLATIN [Suspect]
     Active Substance: CISPLATIN
     Indication: Neuroblastoma
     Dosage: 28 MG (DAY 1-4) ETOPOSIDE COMBINED WITH CISPLATIN CHEMOTHERAPY FOR ONE CYCLE A TOTAL OF 5 CYCLES OF
     Route: 065
     Dates: start: 20211104
  7. NEDAPLATIN [Suspect]
     Active Substance: NEDAPLATIN
     Indication: Neuroblastoma
     Dosage: 30 MG (DAY 1-3) ETOPOSIDE COMBINED WITH NEDAPLATIN FOR TWO CYCLES A TOTAL OF 5 CYCLES OF CHEMOTHERAP
     Route: 065
     Dates: start: 20211201
  8. NEDAPLATIN [Suspect]
     Active Substance: NEDAPLATIN
     Dosage: 30 MG (DAY 1-3) ETOPOSIDE COMBINED WITH NEDAPLATIN FOR TWO CYCLES A TOTAL OF 5 CYCLES OF CHEMOTHERAP
     Route: 065
     Dates: start: 20211229
  9. EPIRUBICIN [Suspect]
     Active Substance: EPIRUBICIN
     Indication: Neuroblastoma
     Dosage: A TOTAL OF 5 CYCLES OF CHEMOTHERAPY (CUMULATIVE DOSES OF EPIRUBICIN 390 MG)
     Route: 065

REACTIONS (30)
  - Toxicity to various agents [Unknown]
  - Cardiac failure acute [Recovering/Resolving]
  - Dyspnoea [Recovering/Resolving]
  - Pallor [Recovering/Resolving]
  - Sinus tachycardia [Recovering/Resolving]
  - Irritability [Recovering/Resolving]
  - Cyanosis [Recovering/Resolving]
  - Crying [Recovering/Resolving]
  - Tachypnoea [Recovering/Resolving]
  - Vomiting [Recovering/Resolving]
  - Orthopnoea [Recovering/Resolving]
  - Decreased appetite [Recovering/Resolving]
  - Mental disorder [Recovering/Resolving]
  - Poor quality sleep [Recovering/Resolving]
  - Urine output decreased [Recovering/Resolving]
  - Bradycardia [Recovering/Resolving]
  - Electrocardiogram ST segment elevation [Recovering/Resolving]
  - Cardiac dysfunction [Recovering/Resolving]
  - Aortic valve incompetence [Recovering/Resolving]
  - Cardiomegaly [Recovering/Resolving]
  - Mitral valve incompetence [Recovering/Resolving]
  - Tricuspid valve incompetence [Recovering/Resolving]
  - Cardiac dysfunction [Recovering/Resolving]
  - Pericardial effusion [Recovered/Resolved]
  - Pulmonary oedema [Unknown]
  - Pleural effusion [Unknown]
  - Myelosuppression [Recovered/Resolved]
  - Epistaxis [Unknown]
  - White blood cell count decreased [Recovering/Resolving]
  - Platelet count decreased [Recovering/Resolving]

NARRATIVE: CASE EVENT DATE: 20211101
